FAERS Safety Report 21291840 (Version 1)
Quarter: 2022Q3

REPORT INFORMATION
  Report Type: Spontaneous
  Country: LB (occurrence: LB)
  Receive Date: 20220903
  Receipt Date: 20220903
  Transmission Date: 20221026
  Serious: Yes (Other)
  Sender: FDA-Public Use
  Company Number: LB-SA-2022SA357456

PATIENT
  Age: 48 Year
  Sex: Male

DRUGS (4)
  1. AFLIBERCEPT [Suspect]
     Active Substance: AFLIBERCEPT
     Indication: Macular oedema
     Dosage: INJECTION
     Route: 031
  2. AFLIBERCEPT [Suspect]
     Active Substance: AFLIBERCEPT
     Indication: Retinal vein occlusion
  3. DORZOLAMIDE\TIMOLOL [Concomitant]
     Active Substance: DORZOLAMIDE\TIMOLOL
     Indication: Glaucoma
  4. BRIMONIDINE [Concomitant]
     Active Substance: BRIMONIDINE TARTRATE
     Indication: Glaucoma

REACTIONS (7)
  - Acute macular neuroretinopathy [Recovered/Resolved]
  - Blindness [Recovered/Resolved]
  - Foveal reflex abnormal [Recovered/Resolved]
  - Retinal scar [Recovered/Resolved]
  - Photocoagulation [Recovered/Resolved]
  - Visual field defect [Recovered/Resolved]
  - Corneal lesion [Recovered/Resolved]
